FAERS Safety Report 22400091 (Version 1)
Quarter: 2023Q2

REPORT INFORMATION
  Report Type: Spontaneous
  Country: US (occurrence: US)
  Receive Date: 20230602
  Receipt Date: 20230602
  Transmission Date: 20230721
  Serious: No
  Sender: FDA-Public Use
  Company Number: US-SA-SAC20230420000755

PATIENT
  Age: 36 Year
  Sex: Female
  Weight: 83 kg

DRUGS (10)
  1. FABRAZYME [Suspect]
     Active Substance: AGALSIDASE BETA
     Indication: Fabry^s disease
     Dosage: 45 MG, QOW
     Route: 042
     Dates: start: 20201119
  2. FABRAZYME [Suspect]
     Active Substance: AGALSIDASE BETA
     Dosage: 45 MG, QOW
     Route: 042
  3. EPINEPHRINE [Concomitant]
     Active Substance: EPINEPHRINE
  4. ACETAMINOPHEN [Concomitant]
     Active Substance: ACETAMINOPHEN
  5. STERILE WATER FOR INJECTION [Concomitant]
     Active Substance: WATER
  6. SODIUM CHLORIDE [Concomitant]
     Active Substance: SODIUM CHLORIDE
  7. ASPIRIN [Concomitant]
     Active Substance: ASPIRIN
  8. DIPHENHYDRAMINE HYDROCHLORIDE [Concomitant]
     Active Substance: DIPHENHYDRAMINE HYDROCHLORIDE
  9. VITAMINS NOS [Concomitant]
     Active Substance: VITAMINS
  10. SODIUM CHLORIDE [Concomitant]
     Active Substance: SODIUM CHLORIDE

REACTIONS (1)
  - Illness [Unknown]
